FAERS Safety Report 7420152-9 (Version None)
Quarter: 2011Q2

REPORT INFORMATION
  Report Type: 
  Country: None (occurrence: None)
  Receive Date: 20110413
  Receipt Date: 20110413
  Transmission Date: 20111010
  Serious: No
  Sender: FDA-Public Use
  Company Number: None

PATIENT
  Sex: Female

DRUGS (1)
  1. OXYBUTYNIN 5 MG [Suspect]
     Dosage: 270 3 X DAILY
     Dates: start: 20110328

REACTIONS (2)
  - MALAISE [None]
  - UNEVALUABLE EVENT [None]
